FAERS Safety Report 25462563 (Version 1)
Quarter: 2025Q2

REPORT INFORMATION
  Report Type: Spontaneous
  Country: BR (occurrence: BR)
  Receive Date: 20250620
  Receipt Date: 20250620
  Transmission Date: 20250716
  Serious: Yes (Hospitalization, Other)
  Sender: AMGEN
  Company Number: BR-AMGEN-BRASP2025116330

PATIENT

DRUGS (2)
  1. ADALIMUMAB [Suspect]
     Active Substance: ADALIMUMAB
     Indication: Pyoderma gangrenosum
     Route: 065
  2. INFLIXIMAB [Suspect]
     Active Substance: INFLIXIMAB
     Indication: Pyoderma gangrenosum
     Route: 065

REACTIONS (10)
  - Pyoderma gangrenosum [Unknown]
  - Infection [Unknown]
  - Acute febrile neutrophilic dermatosis [Unknown]
  - Demyelination [Unknown]
  - Sepsis [Unknown]
  - Drug effective for unapproved indication [Unknown]
  - Nephropathy [Unknown]
  - Neutrophilic dermatosis [Unknown]
  - Anaemia [Unknown]
  - Off label use [Unknown]
